FAERS Safety Report 5792351-3 (Version None)
Quarter: 2008Q2

REPORT INFORMATION
  Report Type: 
  Country: None (occurrence: None)
  Receive Date: 20080626
  Receipt Date: 20080423
  Transmission Date: 20081010
  Serious: No
  Sender: FDA-Public Use
  Company Number: US-ASTRAZENECA-2008UW08279

PATIENT
  Age: 72 Year
  Sex: Female

DRUGS (2)
  1. PULMICORT FLEXHALER [Suspect]
     Indication: CHRONIC OBSTRUCTIVE PULMONARY DISEASE
     Dosage: 90 MCG ONE PUFF BID
     Route: 055
  2. IPRATROPIUM BROMIDE [Concomitant]

REACTIONS (1)
  - DRUG INEFFECTIVE [None]
